FAERS Safety Report 5446849-8 (Version None)
Quarter: 2007Q3

REPORT INFORMATION
  Report Type: 
  Country: None (occurrence: None)
  Receive Date: 20070907
  Receipt Date: 20070828
  Transmission Date: 20080115
  Serious: Yes (Other)
  Sender: FDA-Public Use
  Company Number: US-PFIZER INC-2007073012

PATIENT

DRUGS (1)
  1. NEURONTIN [Suspect]

REACTIONS (2)
  - IMPAIRED WORK ABILITY [None]
  - SEDATION [None]
